FAERS Safety Report 4487625-2 (Version None)
Quarter: 2004Q4

REPORT INFORMATION
  Report Type: 
  Country: None (occurrence: None)
  Receive Date: 20041027
  Receipt Date: 20041027
  Transmission Date: 20050328
  Serious: Yes (Hospitalization)
  Sender: FDA-Public Use
  Company Number: None

PATIENT
  Sex: Male
  Weight: 54.3 kg

DRUGS (7)
  1. PHENYTOIN [Suspect]
     Indication: CONVULSION PROPHYLAXIS
     Dosage: 300 MG Q8H INTRAVENOUS
     Route: 042
     Dates: start: 20041008, end: 20041021
  2. AMPICILLIN [Suspect]
     Indication: URINARY TRACT INFECTION
     Dosage: 250 MG Q8H INTRAVENOUS
     Route: 042
     Dates: start: 20041012, end: 20041019
  3. PREVACID [Concomitant]
  4. ATENOLOL [Concomitant]
  5. VICODIN [Concomitant]
  6. HALDOL [Concomitant]
  7. ATIVAN [Concomitant]

REACTIONS (1)
  - RASH [None]
